FAERS Safety Report 23638463 (Version 2)
Quarter: 2024Q1

REPORT INFORMATION
  Report Type: Spontaneous
  Country: CH (occurrence: CH)
  Receive Date: 20240315
  Receipt Date: 20240325
  Transmission Date: 20240410
  Serious: No
  Sender: FDA-Public Use
  Company Number: CH-MYLANLABS-2024M1021452

PATIENT

DRUGS (8)
  1. SILDENAFIL CITRATE [Suspect]
     Active Substance: SILDENAFIL CITRATE
     Indication: Systemic scleroderma
     Dosage: UNK
     Route: 065
  2. SILDENAFIL CITRATE [Suspect]
     Active Substance: SILDENAFIL CITRATE
     Indication: Vasculitis necrotising
  3. AMLODIPINE [Suspect]
     Active Substance: AMLODIPINE BESYLATE
     Indication: Systemic scleroderma
     Dosage: UNK
     Route: 065
  4. AMLODIPINE [Suspect]
     Active Substance: AMLODIPINE BESYLATE
     Indication: Vasculitis necrotising
  5. ASPIRIN [Suspect]
     Active Substance: ASPIRIN
     Indication: Vasculitis necrotising
     Dosage: UNK
     Route: 065
  6. ASPIRIN [Suspect]
     Active Substance: ASPIRIN
     Indication: Systemic scleroderma
  7. BOSENTAN [Suspect]
     Active Substance: BOSENTAN
     Indication: Vasculitis necrotising
     Dosage: UNK
     Route: 065
  8. BOSENTAN [Suspect]
     Active Substance: BOSENTAN
     Indication: Systemic scleroderma

REACTIONS (2)
  - Drug ineffective for unapproved indication [Unknown]
  - Off label use [Unknown]
